FAERS Safety Report 6143139-5 (Version None)
Quarter: 2009Q2

REPORT INFORMATION
  Report Type: 
  Country: None (occurrence: None)
  Receive Date: 20090403
  Receipt Date: 20090327
  Transmission Date: 20091009
  Serious: No
  Sender: FDA-Public Use
  Company Number: JP-EISAI MEDIAL RESEARCH-E3810-02270-SPO-JP

PATIENT
  Sex: Male

DRUGS (1)
  1. PARIET (RABEPRAZOLE) [Suspect]
     Indication: REFLUX OESOPHAGITIS
     Route: 048
     Dates: start: 20060101, end: 20080912

REACTIONS (1)
  - PANCYTOPENIA [None]
